FAERS Safety Report 5376210-6 (Version None)
Quarter: 2007Q2

REPORT INFORMATION
  Report Type: 
  Country: None (occurrence: None)
  Receive Date: 20070628
  Receipt Date: 20070614
  Transmission Date: 20071010
  Serious: Yes (Hospitalization)
  Sender: FDA-Public Use
  Company Number: 2007JP002821

PATIENT
  Age: 68 Year
  Sex: Female

DRUGS (8)
  1. PROGRAF [Suspect]
     Indication: RHEUMATOID ARTHRITIS
     Dosage: 1 MG, D, ORAL
     Route: 048
     Dates: end: 20070601
  2. WARFARIN SODIUM [Suspect]
     Dosage: 2 MG, D, ORAL
     Route: 048
     Dates: end: 20070521
  3. LIPITOR [Concomitant]
  4. MICARDIS [Concomitant]
  5. ATELEC (CILNIDIPINE) [Concomitant]
  6. OMEPRAL [Concomitant]
  7. PREDNISOLONE [Concomitant]
  8. MAGMITT (MAGNESIUM OXIDE) [Concomitant]

REACTIONS (2)
  - MENINGITIS TUBERCULOUS [None]
  - SARCOIDOSIS [None]
